FAERS Safety Report 26154377 (Version 1)
Quarter: 2025Q4

REPORT INFORMATION
  Report Type: Spontaneous
  Country: US (occurrence: None)
  Receive Date: 20251215
  Receipt Date: 20251215
  Transmission Date: 20260117
  Serious: Yes (Hospitalization, Other)
  Sender: UCB
  Company Number: US-UCBSA-2025078252

PATIENT

DRUGS (25)
  1. KEPPRA [Suspect]
     Active Substance: LEVETIRACETAM
     Indication: Seizure
     Dosage: 500 MILLIGRAM, UNK
  2. NAYZILAM [Suspect]
     Active Substance: MIDAZOLAM
     Indication: Seizure
     Dosage: 0.4 ML, ONCE, PRN (SEIZURE GREATER THAN 3 MINS
  3. ONFI [Concomitant]
     Active Substance: CLOBAZAM
     Indication: Seizure
     Dosage: 2.5 ML B.I.D. AND 1 ML IN THE AFTERNOON
  4. ONFI [Concomitant]
     Active Substance: CLOBAZAM
     Dosage: UNK2 ML, 1 ML, 2 ML
  5. ONFI [Concomitant]
     Active Substance: CLOBAZAM
     Dosage: 5 MG/2.5 MG/5 MG,
  6. ONFI [Concomitant]
     Active Substance: CLOBAZAM
     Dosage: 2.5 ML B.I.D. AND 1 ML IN THE AFTERNOON
  7. TOPAMAX [Concomitant]
     Active Substance: TOPIRAMATE
     Indication: Seizure
     Dosage: 60 MG B.I.D. (10 ML B.I.D.) = 13 MG PER KG PER DAY DIVIDED B.I.D.
  8. TOPAMAX [Concomitant]
     Active Substance: TOPIRAMATE
     Dosage: 12 MG B.I.D. ( 1 ML B.L.D.)
  9. TOPAMAX [Concomitant]
     Active Substance: TOPIRAMATE
     Dosage: 48 MILLIGRAM, 2X/DAY (BID)
  10. TOPAMAX [Concomitant]
     Active Substance: TOPIRAMATE
     Dosage: 10 MILLILITER, 2X/DAY (BID)
  11. EPIDIOLEX [Concomitant]
     Active Substance: CANNABIDIOL
     Indication: Seizure
     Dosage: 90 MG B.I.D. (0.9 ML B.I.D.) = 20 MG PER KG PER DAY DIVIDED B.I.D.
  12. EPIDIOLEX [Concomitant]
     Active Substance: CANNABIDIOL
     Dosage: 40 MILLIGRAM, 2X/DAY (BID)
  13. EPIDIOLEX [Concomitant]
     Active Substance: CANNABIDIOL
     Dosage: 60 MILLIGRAM, 2X/DAY (BID)
  14. EPIDIOLEX [Concomitant]
     Active Substance: CANNABIDIOL
     Dosage: 0.9 MILLILITER, 2X/DAY (BID)
  15. DIASTAT [Concomitant]
     Active Substance: DIAZEPAM
     Indication: Seizure
  16. ATIVAN [Concomitant]
     Active Substance: LORAZEPAM
     Indication: Seizure
     Dosage: 2 MILLIGRAM
  17. ETOMIDATE [Concomitant]
     Active Substance: ETOMIDATE
     Indication: Seizure
     Dosage: 2.6 MILLIGRAM
  18. SUXAMETHONIUM BROMIDE [Concomitant]
     Active Substance: SUXAMETHONIUM BROMIDE
     Indication: Seizure
     Dosage: 18 MILLIGRAM
  19. VERSED [Concomitant]
     Active Substance: MIDAZOLAM HYDROCHLORIDE
     Indication: Seizure
     Dosage: 1.8 MILLIGRAM
  20. ACETAMINOPHEN [Concomitant]
     Active Substance: ACETAMINOPHEN
     Indication: Pain
     Dosage: 134.4 MG = 4.2 ML, PO, Q6H, PRN
     Route: 061
  21. CANNABIDIOL [Concomitant]
     Active Substance: CANNABIDIOL
     Indication: Product used for unknown indication
     Dosage: 90 MILLIGRAM, 2X/DAY (BID)
     Route: 061
  22. DIAZEPAM [Concomitant]
     Active Substance: DIAZEPAM
     Indication: Seizure
     Dosage: 5 MILLIGRAM, ONCE DAILY (QD)
  23. IBUPROFEN [Concomitant]
     Active Substance: IBUPROFEN
     Indication: Pain
     Dosage: 90 MILLIGRAM, Q6H, PRN
     Route: 061
  24. TYLENOL [Concomitant]
     Active Substance: ACETAMINOPHEN
     Indication: Pain
     Dosage: 134.4 MILLIGRAM Q6H
     Route: 061
  25. TOPIRAMATE [Concomitant]
     Active Substance: TOPIRAMATE
     Indication: Product used for unknown indication
     Dosage: 10 MILLILITER, 2X/DAY (BID)
     Route: 061

REACTIONS (7)
  - Seizure [Recovered/Resolved]
  - Status epilepticus [Unknown]
  - Generalised tonic-clonic seizure [Recovered/Resolved]
  - Respiratory failure [Unknown]
  - Weight gain poor [Unknown]
  - Somnolence [Unknown]
  - Autonomic nervous system imbalance [Unknown]
